FAERS Safety Report 24113355 (Version 1)
Quarter: 2024Q3

REPORT INFORMATION
  Report Type: Spontaneous
  Country: FR (occurrence: FR)
  Receive Date: 20240719
  Receipt Date: 20240719
  Transmission Date: 20241017
  Serious: Yes (Hospitalization)
  Sender: TEVA
  Company Number: None

PATIENT
  Age: 10 Year
  Sex: Male
  Weight: 35 kg

DRUGS (6)
  1. METHOTREXATE [Suspect]
     Active Substance: METHOTREXATE
     Indication: T-cell type acute leukaemia
     Dosage: TIME INTERVAL: TOTAL
     Route: 037
     Dates: start: 20240430, end: 20240430
  2. METHOTREXATE [Suspect]
     Active Substance: METHOTREXATE
     Indication: T-cell type acute leukaemia
     Dosage: TIME INTERVAL: TOTAL
     Route: 037
     Dates: start: 20240521, end: 20240521
  3. DEXAMETHASONE [Suspect]
     Active Substance: DEXAMETHASONE
     Indication: T-cell type acute leukaemia
     Dosage: 3.5MG-0-3MG
     Route: 048
     Dates: start: 20240507, end: 20240609
  4. CERUBIDINE [Suspect]
     Active Substance: DAUNORUBICIN HYDROCHLORIDE
     Indication: T-cell type acute leukaemia
     Dosage: TIME INTERVAL: CYCLICAL: J1-J8-J15
     Route: 042
     Dates: start: 20240507, end: 20240521
  5. ONCASPAR [Suspect]
     Active Substance: PEGASPARGASE
     Indication: T-cell type acute leukaemia
     Dosage: TIME INTERVAL: CYCLICAL: 750UI/ML SOL INJ, J4-J18 1500 UI/M?
     Route: 042
     Dates: start: 20240510, end: 20240524
  6. VINCRISTINE [Suspect]
     Active Substance: VINCRISTINE
     Indication: T-cell type acute leukaemia
     Dosage: TIME INTERVAL: CYCLICAL: 2 MG/2 ML, J1-J8-J15, VINCRISTINE HOSPIRA
     Route: 042
     Dates: start: 20240507, end: 20240521

REACTIONS (1)
  - Posterior reversible encephalopathy syndrome [Recovering/Resolving]

NARRATIVE: CASE EVENT DATE: 20240607
